FAERS Safety Report 7086840-1 (Version None)
Quarter: 2010Q4

REPORT INFORMATION
  Report Type: 
  Country: None (occurrence: None)
  Receive Date: 20101105
  Receipt Date: 20101021
  Transmission Date: 20110411
  Serious: Yes (Death)
  Sender: FDA-Public Use
  Company Number: NL-AMGEN-NLDSP2010000431

PATIENT

DRUGS (12)
  1. ENBREL [Suspect]
     Indication: ANKYLOSING SPONDYLITIS
     Route: 058
     Dates: start: 20100616, end: 20100909
  2. IBUPROFEN [Concomitant]
  3. ZOLPIDEM TARTRATE [Concomitant]
  4. SIMVASTATIN [Concomitant]
  5. OMEPRAZOLE [Concomitant]
  6. PARACETAMOL [Concomitant]
  7. CODEINE [Concomitant]
  8. DICLOFENAC SODIUM [Concomitant]
  9. HYDROCHLOROTHIAZIDE [Concomitant]
  10. RIFAMPICIN [Concomitant]
  11. PAROXETINE HCL [Concomitant]
  12. METOPROLOL [Concomitant]

REACTIONS (1)
  - CARDIAC ARREST [None]
